FAERS Safety Report 4501003-9 (Version None)
Quarter: 2004Q4

REPORT INFORMATION
  Report Type: 
  Country: None (occurrence: None)
  Receive Date: 20041115
  Receipt Date: 20041021
  Transmission Date: 20050328
  Serious: Yes (Hospitalization)
  Sender: FDA-Public Use
  Company Number: JP-GLAXOSMITHKLINE-B0349262A

PATIENT
  Age: 81 Year
  Sex: Female
  Weight: 43 kg

DRUGS (5)
  1. VALTREX [Suspect]
     Indication: HERPES ZOSTER
     Dosage: 1000MG THREE TIMES PER DAY
     Route: 048
     Dates: start: 20041013, end: 20041020
  2. BENECID [Concomitant]
     Dosage: 100MG TWICE PER DAY
     Route: 048
  3. SYMMETREL [Concomitant]
     Indication: PARKINSON'S DISEASE
     Dosage: 50MG TWICE PER DAY
     Route: 048
  4. AMLODIN [Concomitant]
     Indication: HYPERTENSION
     Dosage: 2.5MG PER DAY
     Route: 048
  5. MENESIT [Concomitant]
     Indication: PARKINSON'S DISEASE
     Dosage: 200MG UNKNOWN
     Route: 048

REACTIONS (7)
  - BETA 2 MICROGLOBULIN URINE INCREASED [None]
  - BLOOD CREATININE INCREASED [None]
  - BLOOD UREA INCREASED [None]
  - DECREASED APPETITE [None]
  - NAUSEA [None]
  - RENAL FAILURE ACUTE [None]
  - VERTIGO [None]
